FAERS Safety Report 9117153 (Version 1)
Quarter: 2013Q1

REPORT INFORMATION
  Report Type: Spontaneous
  Country: US (occurrence: US)
  Receive Date: 20130225
  Receipt Date: 20130225
  Transmission Date: 20140127
  Serious: Yes (Other)
  Sender: FDA-Public Use
  Company Number: US-JNJFOC-20130210285

PATIENT
  Age: 66 Year
  Sex: Male
  Weight: 92.99 kg

DRUGS (1)
  1. LISTERINE MOUTHWASH [Suspect]
     Indication: DENTAL DISORDER PROPHYLAXIS
     Route: 048
     Dates: start: 20130211, end: 20130211

REACTIONS (2)
  - Tongue blistering [Not Recovered/Not Resolved]
  - Oral discomfort [Recovered/Resolved]
